FAERS Safety Report 8952985 (Version 1)
Quarter: 2012Q4

REPORT INFORMATION
  Report Type: 
  Country: US (occurrence: US)
  Receive Date: 20121205
  Receipt Date: 20121205
  Transmission Date: 20130627
  Serious: No
  Sender: FDA-Public Use
  Company Number: US-TEVA-374271USA

PATIENT

DRUGS (1)
  1. PROAIR HFA [Suspect]

REACTIONS (1)
  - Tooth erosion [Unknown]
